FAERS Safety Report 18165112 (Version 5)
Quarter: 2025Q3

REPORT INFORMATION
  Report Type: Spontaneous
  Country: EU (occurrence: EU)
  Receive Date: 20200818
  Receipt Date: 20250708
  Transmission Date: 20251020
  Serious: Yes (Hospitalization, Other)
  Sender: NOVARTIS
  Company Number: None

PATIENT
  Age: 53 Year
  Sex: Male

DRUGS (27)
  1. CYCLOSPORINE [Suspect]
     Active Substance: CYCLOSPORINE
     Indication: Stem cell transplant
     Dosage: 100 MG, QD (50 MG EVERY 12 HOURS PROGRESSIVELY TAPRED)
     Route: 065
     Dates: start: 200512
  2. CYCLOSPORINE [Suspect]
     Active Substance: CYCLOSPORINE
     Indication: Prophylaxis against graft versus host disease
     Dosage: 50 MG, EVERY 12 HOURS PROGRESSIVELY TAPRED
     Route: 065
  3. ETOPOSIDE [Suspect]
     Active Substance: ETOPOSIDE
     Indication: Product used for unknown indication
     Route: 065
     Dates: start: 200512
  4. ACYCLOVIR [Suspect]
     Active Substance: ACYCLOVIR
     Indication: Product used for unknown indication
     Route: 065
  5. CARBOPLATIN [Suspect]
     Active Substance: CARBOPLATIN
     Indication: Product used for unknown indication
     Route: 065
     Dates: start: 200512
  6. METHOTREXATE [Suspect]
     Active Substance: METHOTREXATE
     Indication: Prophylaxis against graft versus host disease
     Route: 065
     Dates: start: 200512
  7. METHOTREXATE [Suspect]
     Active Substance: METHOTREXATE
     Indication: Stem cell transplant
  8. PREDNISOLONE [Suspect]
     Active Substance: PREDNISOLONE
     Indication: Acute graft versus host disease in skin
     Route: 065
  9. PREDNISOLONE [Suspect]
     Active Substance: PREDNISOLONE
     Indication: Acute graft versus host disease
     Route: 065
  10. PREDNISOLONE [Suspect]
     Active Substance: PREDNISOLONE
     Dosage: 30 MG, QD (142 DAYS AFTER TRANSPLANTATION THE PATIENT RECEIVED 30 MG/D)
     Route: 065
  11. BISOPROLOL FUMARATE [Suspect]
     Active Substance: BISOPROLOL FUMARATE
     Indication: Product used for unknown indication
     Dosage: 5 MG, QD
     Route: 065
  12. ENALAPRIL [Suspect]
     Active Substance: ENALAPRIL
     Indication: Product used for unknown indication
     Dosage: 20 MG, QD
     Route: 065
  13. FLUDARABINE [Suspect]
     Active Substance: FLUDARABINE PHOSPHATE
     Indication: Stem cell transplant
     Route: 065
     Dates: start: 200512
  14. FLUDARABINE [Suspect]
     Active Substance: FLUDARABINE PHOSPHATE
     Indication: Acute myeloid leukaemia
  15. BUSULFAN [Suspect]
     Active Substance: BUSULFAN
     Indication: Stem cell transplant
     Route: 065
     Dates: start: 200512
  16. BUSULFAN [Suspect]
     Active Substance: BUSULFAN
     Indication: Bone marrow conditioning regimen
  17. BUSULFAN [Suspect]
     Active Substance: BUSULFAN
     Indication: Acute myeloid leukaemia
  18. FOLATE SODIUM [Suspect]
     Active Substance: FOLATE SODIUM
     Indication: Product used for unknown indication
     Route: 065
  19. IDARUBICIN [Suspect]
     Active Substance: IDARUBICIN
     Indication: Acute myeloid leukaemia
     Route: 065
     Dates: start: 200504
  20. METHYLPREDNISOLONE [Suspect]
     Active Substance: METHYLPREDNISOLONE
     Indication: Glomerulonephritis minimal lesion
     Dosage: 1 G, TID
     Route: 042
  21. CYTARABINE [Suspect]
     Active Substance: CYTARABINE
     Indication: Product used for unknown indication
     Route: 065
     Dates: start: 200504
  22. METHYLPREDNISOLONE [Suspect]
     Active Substance: METHYLPREDNISOLONE
     Indication: Glomerulonephritis minimal lesion
     Dosage: 3 G, QD (1 G, TID (3/DAY)
     Route: 042
  23. SULFAMETHOXAZOLE\TRIMETHOPRIM [Concomitant]
     Active Substance: SULFAMETHOXAZOLE\TRIMETHOPRIM
     Indication: Product used for unknown indication
     Dosage: 960 MG, THREE TIMES A WEEK
     Route: 065
  24. COTRIMOXAZOLE [Concomitant]
     Active Substance: SULFAMETHOXAZOLE\TRIMETHOPRIM
     Indication: Product used for unknown indication
     Route: 065
  25. MIANSERIN [Concomitant]
     Active Substance: MIANSERIN
     Indication: Product used for unknown indication
     Route: 065
  26. MAGNESIUM [Concomitant]
     Active Substance: MAGNESIUM
     Indication: Product used for unknown indication
     Route: 065
  27. FOLATE SODIUM [Concomitant]
     Active Substance: FOLATE SODIUM
     Indication: Product used for unknown indication
     Route: 065

REACTIONS (49)
  - Nephrotic syndrome [Recovered/Resolved]
  - Dry mouth [Recovered/Resolved]
  - Glomerulonephritis minimal lesion [Unknown]
  - Face oedema [Unknown]
  - Oedema peripheral [Unknown]
  - Proteinuria [Recovered/Resolved]
  - Hypoalbuminaemia [Recovered/Resolved]
  - Embolism venous [Recovered/Resolved]
  - Blood lactate dehydrogenase increased [Recovered/Resolved]
  - Meningioma [Recovered/Resolved]
  - Diplopia [Recovered/Resolved]
  - Adenomatous polyposis coli [Unknown]
  - Withdrawal syndrome [Unknown]
  - Coombs direct test positive [Recovered/Resolved]
  - Haptoglobin decreased [Recovered/Resolved]
  - Urine analysis abnormal [Recovered/Resolved]
  - Alanine aminotransferase increased [Unknown]
  - Eye pain [Recovered/Resolved]
  - Blood creatinine increased [Recovered/Resolved]
  - Deep vein thrombosis [Unknown]
  - Lichenoid keratosis [Recovered/Resolved]
  - Skin hypertrophy [Recovered/Resolved]
  - Poikiloderma [Recovered/Resolved]
  - Blood alkaline phosphatase increased [Recovered/Resolved]
  - Blood bilirubin increased [Recovered/Resolved]
  - Blood bilirubin unconjugated increased [Recovered/Resolved]
  - 5^nucleotidase increased [Recovered/Resolved]
  - Dry eye [Recovered/Resolved]
  - Acute graft versus host disease in skin [Recovered/Resolved]
  - Chronic graft versus host disease [Recovered/Resolved]
  - Blood urea increased [Recovered/Resolved]
  - Renal tubular necrosis [Recovered/Resolved]
  - Acute kidney injury [Recovered/Resolved]
  - Venous thrombosis [Recovered/Resolved]
  - Hepatic enzyme increased [Unknown]
  - Acute graft versus host disease [Recovered/Resolved]
  - Gamma-glutamyltransferase increased [Recovered/Resolved]
  - Generalised oedema [Recovered/Resolved]
  - Rash maculo-papular [Recovered/Resolved]
  - Cytomegalovirus infection [Recovered/Resolved]
  - Aspartate aminotransferase increased [Recovered/Resolved]
  - Anti-platelet antibody positive [Recovered/Resolved]
  - Autoimmune disorder [Recovering/Resolving]
  - Reticulocytosis [Recovered/Resolved]
  - Anaemia [Recovered/Resolved]
  - Hypercholesterolaemia [Recovered/Resolved]
  - Thrombocytopenia [Recovered/Resolved]
  - Thrombosis [Unknown]
  - Cholestasis [Recovering/Resolving]
